FAERS Safety Report 7297529-8 (Version None)
Quarter: 2011Q1

REPORT INFORMATION
  Report Type: 
  Country: None (occurrence: None)
  Receive Date: 20110216
  Receipt Date: 20110204
  Transmission Date: 20110831
  Serious: Yes (Death)
  Sender: FDA-Public Use
  Company Number: LT-ACTELION-A-CH2011-44782

PATIENT
  Sex: Male
  Weight: 68 kg

DRUGS (1)
  1. TRACLEER [Suspect]
     Indication: PULMONARY ARTERIAL HYPERTENSION
     Dosage: 125 MG, BID
     Route: 048
     Dates: start: 20070101, end: 20110101

REACTIONS (2)
  - INFLUENZA [None]
  - MULTI-ORGAN FAILURE [None]
